APPROVED DRUG PRODUCT: CAPTOPRIL
Active Ingredient: CAPTOPRIL
Strength: 100MG
Dosage Form/Route: TABLET;ORAL
Application: A074532 | Product #004 | TE Code: AB
Applicant: WOCKHARDT BIO AG
Approved: Mar 28, 1997 | RLD: No | RS: No | Type: RX